FAERS Safety Report 4550805-1 (Version None)
Quarter: 2005Q1

REPORT INFORMATION
  Report Type: 
  Country: None (occurrence: None)
  Receive Date: 20050112
  Receipt Date: 20041109
  Transmission Date: 20050727
  Serious: Yes (Life-Threatening, Disabling)
  Sender: FDA-Public Use
  Company Number: US-MERCK-0411USA01669

PATIENT
  Age: 37 Year
  Sex: Female

DRUGS (3)
  1. VIOXX [Suspect]
     Indication: PAIN MANAGEMENT
     Route: 065
     Dates: start: 20010101
  2. NORCO [Concomitant]
     Route: 065
  3. [THERAPY UNSPECIFIED] [Concomitant]
     Route: 065

REACTIONS (1)
  - SWELLING [None]
